FAERS Safety Report 24644700 (Version 6)
Quarter: 2025Q2

REPORT INFORMATION
  Report Type: Report from Study
  Country: US (occurrence: US)
  Receive Date: 20241121
  Receipt Date: 20250630
  Transmission Date: 20250717
  Serious: Yes (Hospitalization)
  Sender: TAKEDA
  Company Number: US-TAKEDA-2024TUS115614

PATIENT
  Age: 8 Year
  Sex: Male

DRUGS (4)
  1. ECALLANTIDE [Suspect]
     Active Substance: ECALLANTIDE
     Indication: Immune system disorder
  2. TAKHZYRO [Suspect]
     Active Substance: LANADELUMAB-FLYO
     Indication: Immune system disorder
     Dosage: 150 MILLIGRAM, Q2WEEKS
     Dates: start: 202411
  3. TAKHZYRO [Suspect]
     Active Substance: LANADELUMAB-FLYO
  4. TAKHZYRO [Suspect]
     Active Substance: LANADELUMAB-FLYO

REACTIONS (4)
  - Hereditary angioedema [Unknown]
  - Weight increased [Unknown]
  - Thermal burn [Unknown]
  - Weight decreased [Unknown]

NARRATIVE: CASE EVENT DATE: 20241104
